FAERS Safety Report 17996265 (Version 1)
Quarter: 2020Q3

REPORT INFORMATION
  Report Type: Report from Study
  Country: CO (occurrence: CO)
  Receive Date: 20200708
  Receipt Date: 20200708
  Transmission Date: 20201103
  Serious: Yes (Other)
  Sender: FDA-Public Use
  Company Number: NVSC2020CO009814

PATIENT
  Sex: Female

DRUGS (1)
  1. KISQALI [Suspect]
     Active Substance: RIBOCICLIB
     Indication: BREAST CANCER METASTATIC
     Dosage: 600 MG, QD
     Route: 048

REACTIONS (6)
  - Decreased immune responsiveness [Unknown]
  - Neutropenia [Unknown]
  - Feeling hot [Unknown]
  - Haemorrhage [Unknown]
  - Blood calcium decreased [Unknown]
  - Insomnia [Unknown]
